FAERS Safety Report 23391504 (Version 2)
Quarter: 2024Q2

REPORT INFORMATION
  Report Type: Report from Study
  Country: US (occurrence: US)
  Receive Date: 20240111
  Receipt Date: 20240628
  Transmission Date: 20240716
  Serious: No
  Sender: FDA-Public Use
  Company Number: US-SA-SAC20240108000610

PATIENT
  Age: 71 Year
  Sex: Female
  Weight: 59.42 kg

DRUGS (1)
  1. DUPIXENT [Suspect]
     Active Substance: DUPILUMAB
     Indication: Dermatitis atopic
     Dosage: 300 MG, QOW
     Route: 058
     Dates: start: 20210608

REACTIONS (2)
  - Rash [Unknown]
  - Intentional product misuse [Unknown]
